FAERS Safety Report 10586151 (Version 1)
Quarter: 2014Q4

REPORT INFORMATION
  Report Type: Spontaneous
  Country: US (occurrence: US)
  Receive Date: 20141115
  Receipt Date: 20141115
  Transmission Date: 20150529
  Serious: Yes (Hospitalization)
  Sender: FDA-Public Use
  Company Number: PHEH2014US022335

PATIENT
  Sex: Male

DRUGS (2)
  1. DIOVAN [Suspect]
     Active Substance: VALSARTAN
     Indication: BLOOD PRESSURE ABNORMAL
     Dosage: 80 MG, UNK
     Route: 065
  2. CELEBREX [Interacting]
     Active Substance: CELECOXIB
     Indication: PRODUCT USED FOR UNKNOWN INDICATION
     Dosage: UNK
     Route: 065

REACTIONS (8)
  - Fluid retention [Unknown]
  - Drug ineffective [Unknown]
  - Malaise [Unknown]
  - Micturition disorder [Unknown]
  - Drug interaction [Unknown]
  - Somnolence [Unknown]
  - Cardiac failure [Unknown]
  - Thinking abnormal [Unknown]
